FAERS Safety Report 9485646 (Version 1)
Quarter: 2013Q3

REPORT INFORMATION
  Report Type: Spontaneous
  Country: CO (occurrence: CO)
  Receive Date: 20130829
  Receipt Date: 20130829
  Transmission Date: 20140515
  Serious: Yes (Other)
  Sender: FDA-Public Use
  Company Number: CO-BRISTOL-MYERS SQUIBB COMPANY-19216035

PATIENT
  Sex: Male
  Weight: 76 kg

DRUGS (1)
  1. ABATACEPT [Suspect]

REACTIONS (1)
  - Neuropathy peripheral [Unknown]
